APPROVED DRUG PRODUCT: PROCHLORPERAZINE EDISYLATE
Active Ingredient: PROCHLORPERAZINE EDISYLATE
Strength: EQ 5MG BASE/ML
Dosage Form/Route: INJECTABLE;INJECTION
Application: A210710 | Product #001 | TE Code: AP
Applicant: MYLAN LABORATORIES LTD
Approved: Oct 25, 2018 | RLD: No | RS: No | Type: RX